FAERS Safety Report 5904736-2 (Version None)
Quarter: 2008Q3

REPORT INFORMATION
  Report Type: 
  Country: None (occurrence: None)
  Receive Date: 20080909
  Receipt Date: 20080623
  Transmission Date: 20090109
  Serious: Yes (Death, Hospitalization)
  Sender: FDA-Public Use
  Company Number: 163-20785-08050345

PATIENT
  Age: 53 Year
  Sex: Male

DRUGS (11)
  1. THALOMID [Suspect]
     Indication: ERYTHEMA NODOSUM LEPROSUM
     Dosage: 200 MG, HS, ORAL
     Route: 048
     Dates: start: 20080320, end: 20080417
  2. THALOMID [Suspect]
     Indication: ERYTHEMA NODOSUM LEPROSUM
     Dosage: 200 MG, HS, ORAL
     Route: 048
     Dates: start: 20070515
  3. PREDNISONE [Concomitant]
  4. CLOFAZIMINE (CLOFAZIMINE) [Concomitant]
  5. DAPSONE [Concomitant]
  6. CALCIUM (CALCIUM) [Concomitant]
  7. VITAMIN D [Concomitant]
  8. RIFAMPICIN [Concomitant]
  9. CRESTOR [Concomitant]
  10. TRICOR [Concomitant]
  11. AVALIDE (KARVEA HCT) [Concomitant]

REACTIONS (2)
  - DEEP VEIN THROMBOSIS [None]
  - PULMONARY EMBOLISM [None]
